FAERS Safety Report 19934988 (Version 1)
Quarter: 2021Q4

REPORT INFORMATION
  Report Type: Spontaneous
  Country: US (occurrence: US)
  Receive Date: 20211008
  Receipt Date: 20211008
  Transmission Date: 20220303
  Serious: No
  Sender: FDA-Public Use
  Company Number: US-MYLANLABS-2021M1065825

PATIENT
  Sex: Female

DRUGS (1)
  1. WIXELA INHUB [Suspect]
     Active Substance: FLUTICASONE PROPIONATE\SALMETEROL XINAFOATE
     Indication: Alpha-1 antitrypsin deficiency
     Dosage: 500/50 MICROGRAM
     Route: 055

REACTIONS (3)
  - Device issue [Unknown]
  - Product quality issue [Unknown]
  - Off label use [Unknown]
